FAERS Safety Report 9899978 (Version 1)
Quarter: 2014Q1

REPORT INFORMATION
  Report Type: Not Available
  Country: US (occurrence: US)
  Receive Date: 20140214
  Receipt Date: 20140214
  Transmission Date: 20141002
  Serious: No
  Sender: FDA-Public Use
  Company Number: US-VIVUS-2013V1000885

PATIENT
  Sex: Female
  Weight: 66.74 kg

DRUGS (11)
  1. QSYMIA 7.5MG/46MG [Suspect]
     Indication: WEIGHT DECREASED
     Route: 048
     Dates: start: 201310, end: 201311
  2. QSYMIA 7.5MG/46MG [Suspect]
     Indication: BLOOD TRIGLYCERIDES INCREASED
  3. QSYMIA 7.5MG/46MG [Suspect]
     Indication: BLOOD GLUCOSE INCREASED
  4. QSYMIA 3.75MG/23MG [Suspect]
     Indication: WEIGHT DECREASED
     Route: 048
     Dates: start: 201309
  5. QSYMIA 3.75MG/23MG [Suspect]
     Indication: BLOOD TRIGLYCERIDES INCREASED
     Route: 048
     Dates: start: 201311
  6. QSYMIA 3.75MG/23MG [Suspect]
     Indication: BLOOD GLUCOSE INCREASED
  7. FENOFIBRATE [Concomitant]
     Indication: BLOOD TRIGLYCERIDES INCREASED
     Route: 048
     Dates: start: 2008
  8. FENOFIBRATE [Concomitant]
     Indication: BLOOD CHOLESTEROL INCREASED
  9. SYNTHROID [Concomitant]
     Indication: THYROID DISORDER
     Dosage: 125MG ALTERNATING WITH 112MG
     Route: 048
     Dates: start: 2006
  10. MULTIVITAMIN [Concomitant]
     Indication: PRODUCT USED FOR UNKNOWN INDICATION
     Route: 048
  11. TRIAMTERENE/HCTZ [Concomitant]
     Indication: LOCAL SWELLING
     Dosage: 75MG/50MG
     Route: 048
     Dates: start: 2011

REACTIONS (5)
  - Blood glucose decreased [Recovering/Resolving]
  - Hypersensitivity [Unknown]
  - Feeling jittery [Recovering/Resolving]
  - Paraesthesia [Recovering/Resolving]
  - Feeling abnormal [Recovering/Resolving]
